FAERS Safety Report 6203775-4 (Version None)
Quarter: 2009Q2

REPORT INFORMATION
  Report Type: 
  Country: None (occurrence: None)
  Receive Date: 20090527
  Receipt Date: 20090520
  Transmission Date: 20091009
  Serious: Yes (Other)
  Sender: FDA-Public Use
  Company Number: GR-GENENTECH-283614

PATIENT
  Sex: Female

DRUGS (2)
  1. HERCEPTIN [Suspect]
     Indication: BREAST CANCER
     Dosage: UNK
     Route: 065
  2. AROMASIN [Suspect]
     Indication: BREAST CANCER
     Dosage: 25 MG, UNK
     Route: 048

REACTIONS (1)
  - THROMBOCYTOPENIA [None]
